FAERS Safety Report 8619197-2 (Version None)
Quarter: 2012Q3

REPORT INFORMATION
  Report Type: 
  Country: None (occurrence: None)
  Receive Date: 20120824
  Receipt Date: 20120820
  Transmission Date: 20120928
  Serious: Yes (Hospitalization)
  Sender: FDA-Public Use
  Company Number: US-TEVA-355117USA

PATIENT
  Age: 53 Year
  Sex: Female

DRUGS (7)
  1. HYDROXYZINE [Interacting]
     Indication: URTICARIA
     Dosage: AS NEEDED
     Route: 065
  2. HYDROCODONE BITARTRATE [Interacting]
     Route: 065
  3. IBUPROFEN [Concomitant]
     Route: 065
  4. VERAPAMIL [Concomitant]
     Dosage: EXTENDED-RELEASE
     Route: 065
  5. FAMOTIDINE [Concomitant]
     Indication: URTICARIA
     Route: 065
  6. PREDNISONE TAB [Concomitant]
     Indication: URTICARIA
     Dosage: 40MG DAILY
     Route: 065
  7. PAROXETINE [Suspect]
     Dosage: 20 MILLIGRAM DAILY; 20MG DAILY
     Route: 065

REACTIONS (6)
  - ASTHENIA [None]
  - DIZZINESS [None]
  - MENTAL STATUS CHANGES [None]
  - SOMNOLENCE [None]
  - DRUG INTERACTION [None]
  - CONFUSIONAL STATE [None]
